FAERS Safety Report 16454575 (Version 1)
Quarter: 2019Q2

REPORT INFORMATION
  Report Type: Spontaneous
  Country: US (occurrence: US)
  Receive Date: 20190619
  Receipt Date: 20190619
  Transmission Date: 20190711
  Serious: No
  Sender: FDA-Public Use
  Company Number: US-GE HEALTHCARE LIFE SCIENCES-2018CSU005145

PATIENT
  Age: 67 Year
  Sex: Male
  Weight: 126.98 kg

DRUGS (3)
  1. OMNIPAQUE [Suspect]
     Active Substance: IOHEXOL
     Indication: COMPUTERISED TOMOGRAM ABDOMEN
     Dosage: UNK, SINGLE
     Route: 065
     Dates: start: 20181207, end: 20181207
  2. OMNIPAQUE [Suspect]
     Active Substance: IOHEXOL
     Indication: PANCREATIC MASS
  3. OMNIPAQUE [Suspect]
     Active Substance: IOHEXOL
     Indication: RENAL MASS

REACTIONS (3)
  - Swelling face [Recovered/Resolved]
  - Erythema [Recovered/Resolved]
  - Pruritus [Recovered/Resolved]

NARRATIVE: CASE EVENT DATE: 20181207
